FAERS Safety Report 9445555 (Version 2)
Quarter: 2013Q3

REPORT INFORMATION
  Report Type: Spontaneous
  Country: US (occurrence: US)
  Receive Date: 20130807
  Receipt Date: 20130927
  Transmission Date: 20140515
  Serious: No
  Sender: FDA-Public Use
  Company Number: US-PFIZER INC-2013224193

PATIENT
  Sex: Female

DRUGS (2)
  1. ADVIL [Suspect]
     Indication: BREAST PAIN
     Dosage: 400 MG, THRICE A DAY (TOTAL DAILY DOSE OF 1200MG)
     Route: 048
  2. LUCENTIS [Concomitant]
     Indication: MACULAR DEGENERATION
     Dosage: UNK, EVERY 8-10 WEEKS

REACTIONS (2)
  - Fatigue [Recovered/Resolved]
  - Asthenia [Recovered/Resolved]
